FAERS Safety Report 4369905-4 (Version None)
Quarter: 2004Q2

REPORT INFORMATION
  Report Type: 
  Country: None (occurrence: None)
  Receive Date: 20040525
  Receipt Date: 20040511
  Transmission Date: 20050107
  Serious: Yes (Hospitalization)
  Sender: FDA-Public Use
  Company Number: FR-JNJFOC-20040501819

PATIENT
  Age: 38 Year
  Sex: Female
  Weight: 42.2 kg

DRUGS (4)
  1. REMICADE [Suspect]
     Indication: ANKYLOSING SPONDYLITIS
     Dosage: 210 MG, INTRAVENOUS
     Route: 042
     Dates: start: 20031021, end: 20040415
  2. RIVOTRIL (CLONAZEPAM) DROPS [Concomitant]
  3. PANOS (TETRAZEPAM) TABLETS [Concomitant]
  4. BIPROFENID (BISMUTH SUBCARBONATE) TABLETS [Concomitant]

REACTIONS (2)
  - BONE PAIN [None]
  - DEPRESSION [None]
